FAERS Safety Report 12375574 (Version 2)
Quarter: 2016Q3

REPORT INFORMATION
  Report Type: Spontaneous
  Country: US (occurrence: US)
  Receive Date: 20160517
  Receipt Date: 20160901
  Transmission Date: 20161109
  Serious: No
  Sender: FDA-Public Use
  Company Number: US-RELYPSA-RLY2016000040

PATIENT
  Age: 70 Year
  Sex: Female

DRUGS (15)
  1. INSULIN N [Concomitant]
     Active Substance: INSULIN HUMAN
  2. PEPCID                             /00305201/ [Concomitant]
     Active Substance: ALUMINUM HYDROXIDE\MAGNESIUM CARBONATE
     Dosage: 20 MG, BID
  3. NOVOLIN R [Concomitant]
     Active Substance: INSULIN HUMAN
  4. COZAAR [Concomitant]
     Active Substance: LOSARTAN POTASSIUM
     Dosage: 100 MG, QD
  5. VERAPAMIL [Concomitant]
     Active Substance: VERAPAMIL HYDROCHLORIDE
     Dosage: 240 MG, UNK
  6. VELTASSA [Suspect]
     Active Substance: PATIROMER
     Indication: HYPERKALAEMIA
     Dosage: 8.4 G, QD
     Dates: start: 20160130, end: 20160203
  7. LASIX [Concomitant]
     Active Substance: FUROSEMIDE
  8. LEVOTHYROXINE. [Concomitant]
     Active Substance: LEVOTHYROXINE
     Dosage: 125 MCG, EVERY OTHER DAY
  9. WARFARIN [Concomitant]
     Active Substance: WARFARIN
     Dosage: 5-7.5 MG, QD
  10. HYDRAZINE SULFATE [Concomitant]
     Active Substance: HYDRAZINE SULFATE
  11. VERAPAMIL HCL [Concomitant]
     Active Substance: VERAPAMIL HYDROCHLORIDE
  12. LIPITOR [Concomitant]
     Active Substance: ATORVASTATIN CALCIUM
     Dosage: 20 MG, QD
  13. INSULIN RAPID [Concomitant]
     Active Substance: INSULIN NOS
  14. CALCITRIOL. [Concomitant]
     Active Substance: CALCITRIOL
  15. COLACE [Concomitant]
     Active Substance: DOCUSATE SODIUM

REACTIONS (7)
  - Abdominal distension [Unknown]
  - Malaise [Recovered/Resolved]
  - Heart rate increased [Recovered/Resolved]
  - Constipation [Not Recovered/Not Resolved]
  - Palpitations [Recovered/Resolved]
  - Blood pressure increased [Recovered/Resolved]
  - Abdominal pain [Unknown]

NARRATIVE: CASE EVENT DATE: 20160204
